FAERS Safety Report 5325461-5 (Version None)
Quarter: 2007Q2

REPORT INFORMATION
  Report Type: 
  Country: None (occurrence: None)
  Receive Date: 20070515
  Receipt Date: 20070307
  Transmission Date: 20071010
  Serious: Yes (Hospitalization, Other)
  Sender: FDA-Public Use
  Company Number: US-PFIZER INC-2006067101

PATIENT
  Sex: Female

DRUGS (2)
  1. CELEBREX [Suspect]
     Indication: ARTHRITIS
     Route: 048
  2. VIOXX [Suspect]

REACTIONS (11)
  - ADJUSTMENT DISORDER [None]
  - ATRIAL FIBRILLATION [None]
  - CARDIAC FAILURE CONGESTIVE [None]
  - CARDIOACTIVE DRUG LEVEL BELOW THERAPEUTIC [None]
  - DEEP VEIN THROMBOSIS [None]
  - DIABETES MELLITUS INADEQUATE CONTROL [None]
  - DIVERTICULUM [None]
  - GASTROINTESTINAL HAEMORRHAGE [None]
  - HAEMORRHAGIC ANAEMIA [None]
  - HEADACHE [None]
  - VOMITING [None]
